FAERS Safety Report 9778948 (Version 1)
Quarter: 2013Q4

REPORT INFORMATION
  Report Type: Spontaneous
  Country: FR (occurrence: FR)
  Receive Date: 20131223
  Receipt Date: 20131223
  Transmission Date: 20140711
  Serious: Yes (Life-Threatening, Hospitalization)
  Sender: FDA-Public Use
  Company Number: FR-PFIZER INC-2013362257

PATIENT
  Age: 17 Year
  Sex: Male

DRUGS (1)
  1. VFEND [Suspect]
     Indication: FUNGAEMIA
     Dosage: 260 MG, 2X/DAY
     Route: 041
     Dates: start: 20130911, end: 20130923

REACTIONS (4)
  - Nephrotic syndrome [Recovered/Resolved]
  - Drug level above therapeutic [Recovered/Resolved]
  - Hallucination [Recovered/Resolved]
  - Cholestasis [Recovered/Resolved]
